FAERS Safety Report 18325472 (Version 4)
Quarter: 2021Q1

REPORT INFORMATION
  Report Type: Spontaneous
  Country: US (occurrence: US)
  Receive Date: 20200929
  Receipt Date: 20210329
  Transmission Date: 20210419
  Serious: Yes (Hospitalization, Other)
  Sender: FDA-Public Use
  Company Number: US-PFIZER INC-2020337233

PATIENT
  Age: 59 Year
  Sex: Female

DRUGS (2)
  1. METHOTREXATE. [Concomitant]
     Active Substance: METHOTREXATE
     Dosage: UNK
  2. XELJANZ [Suspect]
     Active Substance: TOFACITINIB CITRATE
     Indication: RHEUMATOID ARTHRITIS
     Dosage: 5 MG, 2X/DAY
     Route: 048
     Dates: start: 202005

REACTIONS (11)
  - Pain in extremity [Unknown]
  - Acne [Unknown]
  - Product dose omission in error [Unknown]
  - Memory impairment [Unknown]
  - Depressed mood [Unknown]
  - Dizziness [Unknown]
  - Wheezing [Unknown]
  - Atrial fibrillation [Not Recovered/Not Resolved]
  - Skin infection [Unknown]
  - Illness [Unknown]
  - Chest pain [Unknown]

NARRATIVE: CASE EVENT DATE: 2020
